FAERS Safety Report 20867234 (Version 1)
Quarter: 2022Q2

REPORT INFORMATION
  Report Type: Spontaneous
  Country: US (occurrence: None)
  Receive Date: 20220523
  Receipt Date: 20220523
  Transmission Date: 20220720
  Serious: Yes (Disabling)
  Sender: FDA-Public Use
  Company Number: None

PATIENT
  Age: 78 Year
  Sex: Female
  Weight: 54 kg

DRUGS (6)
  1. ZONISAMIDE [Suspect]
     Active Substance: ZONISAMIDE
     Indication: Seizure
     Dosage: FREQUENCY : AT BEDTIME;?
     Route: 048
     Dates: start: 20211012, end: 20220501
  2. FLUOXETINE HCL [Concomitant]
  3. LAMOTRIGINE [Concomitant]
     Active Substance: LAMOTRIGINE
  4. Fosimex [Concomitant]
  5. CALCIUM\CHOLECALCIFEROL [Concomitant]
     Active Substance: CALCIUM\CHOLECALCIFEROL
  6. One-A-Day for  women [Concomitant]

REACTIONS (12)
  - Confusional state [None]
  - Disturbance in attention [None]
  - Amnesia [None]
  - Aphasia [None]
  - Decreased appetite [None]
  - Ageusia [None]
  - Weight decreased [None]
  - Asthenia [None]
  - Fine motor skill dysfunction [None]
  - Nausea [None]
  - Vomiting [None]
  - Therapy cessation [None]

NARRATIVE: CASE EVENT DATE: 20211012
